FAERS Safety Report 8106619-9 (Version None)
Quarter: 2012Q1

REPORT INFORMATION
  Report Type: 
  Country: None (occurrence: None)
  Receive Date: 20120202
  Receipt Date: 20120123
  Transmission Date: 20120608
  Serious: Yes (Hospitalization, Other)
  Sender: FDA-Public Use
  Company Number: US-ELI_LILLY_AND_COMPANY-US201201006933

PATIENT
  Sex: Female
  Weight: 78.1 kg

DRUGS (13)
  1. FLEXERIL [Concomitant]
     Dosage: UNK
     Dates: start: 20050101
  2. LAMICTAL [Concomitant]
     Dosage: UNK
     Dates: start: 20110611
  3. TRILAFON [Concomitant]
     Indication: DEPRESSION
     Dosage: 8 MG, BID
     Route: 048
     Dates: start: 20000101
  4. WELLBUTRIN [Concomitant]
  5. HEPARIN [Concomitant]
     Dosage: UNK
     Dates: start: 20111107
  6. INDERAL [Concomitant]
     Dosage: UNK
     Dates: start: 19910101
  7. CALCIUM + VITAMIN D [Concomitant]
  8. HYDROMORPHONE HCL [Concomitant]
     Dosage: UNK
     Dates: start: 20111108, end: 20111109
  9. VITAMINS NOS [Concomitant]
  10. KEPPRA [Concomitant]
     Dosage: UNK
     Dates: start: 20110501
  11. MORPHINE [Concomitant]
     Dosage: UNK
     Dates: start: 20090101
  12. ANTIHISTAMINES [Concomitant]
     Route: 042
  13. PROZAC [Suspect]
     Indication: DEPRESSION
     Dosage: 60 MG, QD
     Route: 048
     Dates: start: 20000101

REACTIONS (5)
  - HYPONATRAEMIA [None]
  - RENAL FAILURE [None]
  - HYPERSENSITIVITY [None]
  - ANAPHYLACTOID REACTION [None]
  - SKIN BACTERIAL INFECTION [None]
